FAERS Safety Report 8576399-1 (Version None)
Quarter: 2012Q3

REPORT INFORMATION
  Report Type: 
  Country: None (occurrence: None)
  Receive Date: 20120807
  Receipt Date: 20120802
  Transmission Date: 20120928
  Serious: Yes (Hospitalization, Other)
  Sender: FDA-Public Use
  Company Number: IN-PFIZER INC-2012015058

PATIENT
  Age: 52 Year
  Sex: Male

DRUGS (4)
  1. SUTENT [Suspect]
     Dosage: 50 MG, 1X/DAY
     Route: 048
     Dates: start: 20120401
  2. SUTENT [Suspect]
     Dosage: 25 MG, 1X/DAY
     Route: 048
     Dates: start: 20120201
  3. SUTENT [Suspect]
     Dosage: 37.5 MG, 1X/DAY
     Route: 048
     Dates: start: 20120501
  4. SUTENT [Suspect]
     Indication: METASTATIC RENAL CELL CARCINOMA
     Dosage: 50 MG, 1X/DAY
     Route: 048
     Dates: start: 20111110

REACTIONS (17)
  - MOUTH ULCERATION [None]
  - NAUSEA [None]
  - EYE SWELLING [None]
  - SWELLING FACE [None]
  - OESOPHAGITIS [None]
  - HICCUPS [None]
  - NON-CARDIAC CHEST PAIN [None]
  - APHAGIA [None]
  - DYSGEUSIA [None]
  - GASTRITIS [None]
  - FURUNCLE [None]
  - SKIN DISCOLOURATION [None]
  - DYSPEPSIA [None]
  - VOMITING [None]
  - DIARRHOEA [None]
  - HYPOTHYROIDISM [None]
  - ERYTHEMA [None]
